FAERS Safety Report 19712044 (Version 4)
Quarter: 2021Q3

REPORT INFORMATION
  Report Type: Spontaneous
  Country: US (occurrence: US)
  Receive Date: 20210816
  Receipt Date: 20210830
  Transmission Date: 20211014
  Serious: Yes (Hospitalization, Other)
  Sender: FDA-Public Use
  Company Number: US-SA-2021SA269288

PATIENT

DRUGS (2)
  1. PLAVIX [Suspect]
     Active Substance: CLOPIDOGREL BISULFATE
     Dosage: UNK
     Route: 065
  2. NIVOLUMAB [Suspect]
     Active Substance: NIVOLUMAB
     Dosage: UNK

REACTIONS (5)
  - Renal tubular necrosis [Unknown]
  - Deep vein thrombosis [Not Recovered/Not Resolved]
  - Ventricular arrhythmia [Unknown]
  - Haematuria [Not Recovered/Not Resolved]
  - Pseudomonal bacteraemia [Unknown]

NARRATIVE: CASE EVENT DATE: 20210804
